FAERS Safety Report 21037528 (Version 2)
Quarter: 2022Q3

REPORT INFORMATION
  Report Type: Spontaneous
  Country: US (occurrence: US)
  Receive Date: 20220703
  Receipt Date: 20220922
  Transmission Date: 20221027
  Serious: Yes (Other)
  Sender: FDA-Public Use
  Company Number: US-BRISTOL-MYERS SQUIBB COMPANY-2022-058509

PATIENT
  Age: 80 Year
  Sex: Male
  Weight: 92.08 kg

DRUGS (1)
  1. REVLIMID [Suspect]
     Active Substance: LENALIDOMIDE
     Indication: Product used for unknown indication
     Dosage: 5 MG DAILY FOR 21 DAYS
     Route: 048
     Dates: start: 20220501

REACTIONS (6)
  - Blood pressure abnormal [Unknown]
  - Renal impairment [Unknown]
  - Peripheral swelling [Unknown]
  - Fatigue [Unknown]
  - Insomnia [Unknown]
  - Constipation [Unknown]
